FAERS Safety Report 8140514-4 (Version None)
Quarter: 2012Q1

REPORT INFORMATION
  Report Type: 
  Country: None (occurrence: None)
  Receive Date: 20120214
  Receipt Date: 20120214
  Transmission Date: 20120608
  Serious: Yes (Other)
  Sender: FDA-Public Use
  Company Number: None

PATIENT
  Age: 18 Year
  Sex: Female

DRUGS (1)
  1. HYDROGEN PEROXIDE SOLUTION [Suspect]
     Indication: DENTAL CARE
     Dosage: 3 TEASPOON, ONCE DAILY. ORAL
     Route: 048
     Dates: start: 20120116, end: 20120119

REACTIONS (8)
  - GINGIVAL BLEEDING [None]
  - TOOTH DISORDER [None]
  - GINGIVAL BLISTER [None]
  - MEDICATION RESIDUE [None]
  - TOOTHACHE [None]
  - TOOTH DISCOLOURATION [None]
  - GINGIVAL PAIN [None]
  - APHAGIA [None]
